FAERS Safety Report 17259786 (Version 1)
Quarter: 2020Q1

REPORT INFORMATION
  Report Type: Spontaneous
  Country: PL (occurrence: PL)
  Receive Date: 20200110
  Receipt Date: 20200110
  Transmission Date: 20200409
  Serious: Yes (Other)
  Sender: FDA-Public Use
  Company Number: PL-AUROBINDO-AUR-APL-2020-001835

PATIENT
  Age: 34 Year
  Sex: Male

DRUGS (2)
  1. CHENODEOXYCHOLIC ACID [Suspect]
     Active Substance: CHENODIOL
     Indication: XANTHOMATOSIS
     Dosage: 1000 MILLIGRAM (TREATMENT WAS CONSIDERED A FAILURE AFTER 2 YEARS OF TREATMENT)
     Route: 065
  2. SIMVASTATIN. [Suspect]
     Active Substance: SIMVASTATIN
     Indication: XANTHOMATOSIS
     Dosage: 10 MILLIGRAM (TREATMENT WAS CONSIDERED A FAILURE AFTER 2 YEARS OF TREATMENT)
     Route: 065

REACTIONS (1)
  - Treatment failure [Unknown]
